FAERS Safety Report 20576356 (Version 4)
Quarter: 2022Q3

REPORT INFORMATION
  Report Type: Report from Study
  Country: JP (occurrence: JP)
  Receive Date: 20220310
  Receipt Date: 20220714
  Transmission Date: 20221027
  Serious: Yes (Death, Other)
  Sender: FDA-Public Use
  Company Number: JP-GSKJP-JP2021JPN237625AA

PATIENT

DRUGS (23)
  1. MEPOLIZUMAB [Suspect]
     Active Substance: MEPOLIZUMAB
     Indication: Eosinophilic granulomatosis with polyangiitis
     Dosage: 300 MG
     Route: 058
     Dates: start: 20210806, end: 20210806
  2. MEPOLIZUMAB [Suspect]
     Active Substance: MEPOLIZUMAB
     Dosage: 300 MG
     Route: 058
     Dates: start: 20211008, end: 20211008
  3. MEPOLIZUMAB [Suspect]
     Active Substance: MEPOLIZUMAB
     Indication: Eosinophilic granulomatosis with polyangiitis
     Dosage: 300 MG
     Route: 058
     Dates: start: 20211105, end: 20211105
  4. MEPOLIZUMAB [Suspect]
     Active Substance: MEPOLIZUMAB
     Dosage: 300 MG
     Route: 058
     Dates: start: 20211203, end: 20211203
  5. MEPOLIZUMAB [Suspect]
     Active Substance: MEPOLIZUMAB
     Dosage: 300 MG
     Route: 058
     Dates: start: 20220107, end: 20220107
  6. MEPOLIZUMAB [Suspect]
     Active Substance: MEPOLIZUMAB
     Dosage: 300 MG
     Route: 058
     Dates: start: 20220204, end: 20220204
  7. PREDNISOLONE [Concomitant]
     Active Substance: PREDNISOLONE
     Indication: Eosinophilic granulomatosis with polyangiitis
     Dosage: 30 MG
     Dates: start: 20210730, end: 20210806
  8. PREDNISOLONE [Concomitant]
     Active Substance: PREDNISOLONE
     Dosage: 25 MG
     Dates: start: 20210807, end: 20210813
  9. PREDNISOLONE [Concomitant]
     Active Substance: PREDNISOLONE
     Dosage: 20 MG
     Dates: start: 20210814, end: 20211007
  10. PREDNISOLONE [Concomitant]
     Active Substance: PREDNISOLONE
     Dosage: 15 MG
     Dates: start: 20211008, end: 20211104
  11. PREDNISOLONE [Concomitant]
     Active Substance: PREDNISOLONE
     Dosage: 12.5 MG
     Dates: start: 20211105, end: 20211202
  12. PREDNISOLONE [Concomitant]
     Active Substance: PREDNISOLONE
     Dosage: 10 MG
     Dates: start: 20211203, end: 20220106
  13. PREDNISOLONE [Concomitant]
     Active Substance: PREDNISOLONE
     Dosage: 7.5 MG
     Dates: start: 20220107, end: 20220203
  14. PREDNISOLONE [Concomitant]
     Active Substance: PREDNISOLONE
     Dosage: 5 MG
     Dates: start: 20220204, end: 20220207
  15. VALPROATE SODIUM [Concomitant]
     Active Substance: VALPROATE SODIUM
  16. SULFAMETHOXAZOLE\TRIMETHOPRIM [Concomitant]
     Active Substance: SULFAMETHOXAZOLE\TRIMETHOPRIM
     Indication: Prophylaxis
  17. AMBROXOL HYDROCHLORIDE [Concomitant]
     Active Substance: AMBROXOL HYDROCHLORIDE
  18. DEXTROMETHORPHAN HYDROBROMIDE [Concomitant]
     Active Substance: DEXTROMETHORPHAN HYDROBROMIDE
  19. RECLAST [Concomitant]
     Active Substance: ZOLEDRONIC ACID
     Indication: Osteoporosis prophylaxis
  20. RECLAST [Concomitant]
     Active Substance: ZOLEDRONIC ACID
     Indication: Prophylaxis
  21. CODEINE PHOSPHATE [Concomitant]
     Active Substance: CODEINE PHOSPHATE
  22. AMLODIPINE BESYLATE [Concomitant]
     Active Substance: AMLODIPINE BESYLATE
  23. PROCATEROL HYDROCHLORIDE [Concomitant]
     Active Substance: PROCATEROL HYDROCHLORIDE

REACTIONS (2)
  - Death [Fatal]
  - Inappropriate schedule of product administration [Unknown]

NARRATIVE: CASE EVENT DATE: 20211008
